FAERS Safety Report 7301997-2 (Version None)
Quarter: 2011Q1

REPORT INFORMATION
  Report Type: 
  Country: None (occurrence: None)
  Receive Date: 20110218
  Receipt Date: 20110217
  Transmission Date: 20110831
  Serious: Yes (Hospitalization)
  Sender: FDA-Public Use
  Company Number: IT-ROCHE-759566

PATIENT
  Sex: Male
  Weight: 76 kg

DRUGS (7)
  1. PEGINTERFERON ALFA-2A [Suspect]
     Indication: HEPATITIS C
     Route: 058
     Dates: start: 20101230
  2. PLAUNAZIDE [Concomitant]
     Indication: HYPERTENSION
     Dosage: DOSE: 20/25 MG
     Route: 048
  3. GRANULOKINE [Concomitant]
     Dosage: DOSE: 30000000 U.
     Route: 058
     Dates: start: 20101215
  4. LANSOX [Concomitant]
     Indication: GASTRIC DISORDER
     Route: 048
     Dates: start: 20110211
  5. REBETOL [Suspect]
     Indication: HEPATITIS C
     Route: 048
     Dates: start: 20101125
  6. ATENOLOLO [Concomitant]
     Indication: HYPERTENSION
     Dosage: FREQUENCY: 0.5/DAY
     Route: 048
  7. NEXIUM [Concomitant]
     Indication: GASTRIC DISORDER
     Route: 048
     Dates: end: 20110211

REACTIONS (1)
  - PORTAL VEIN THROMBOSIS [None]
